FAERS Safety Report 5782175-5 (Version None)
Quarter: 2008Q2

REPORT INFORMATION
  Report Type: 
  Country: None (occurrence: None)
  Receive Date: 20080623
  Receipt Date: 20080611
  Transmission Date: 20081010
  Serious: Yes (Other)
  Sender: FDA-Public Use
  Company Number: FR-WYE-H03939808

PATIENT
  Age: 71 Year
  Sex: Female

DRUGS (6)
  1. CORDARONE [Suspect]
     Indication: ATRIAL FIBRILLATION
     Route: 048
     Dates: start: 20051101, end: 20060101
  2. CORDARONE [Suspect]
     Dosage: ^LOADING DOSE OF 1800 MG^
     Route: 048
     Dates: start: 20060101, end: 20060101
  3. CORDARONE [Suspect]
     Route: 048
     Dates: start: 20060101, end: 20070301
  4. DIGOXIN [Concomitant]
     Indication: ATRIAL FIBRILLATION
     Dosage: UNSPECIFIED
     Dates: start: 20070501
  5. FLECAINIDE ACETATE [Concomitant]
     Indication: ATRIAL FIBRILLATION
     Dosage: UNSPECIFIED
     Dates: start: 20070501
  6. PREVISCAN [Concomitant]
     Indication: PROPHYLAXIS
     Route: 048

REACTIONS (6)
  - ASTHENIA [None]
  - CORNEAL DEPOSITS [None]
  - DRY MOUTH [None]
  - HYPERTHYROIDISM [None]
  - ONYCHOLYSIS [None]
  - POLYDIPSIA [None]
